FAERS Safety Report 9633082 (Version 2)
Quarter: 2013Q4

REPORT INFORMATION
  Report Type: Spontaneous
  Country: JP (occurrence: JP)
  Receive Date: 20131018
  Receipt Date: 20131101
  Transmission Date: 20140711
  Serious: Yes (Disabling)
  Sender: FDA-Public Use
  Company Number: JP-ASTRAZENECA-2013SE76701

PATIENT
  Age: 40 Year
  Sex: Male

DRUGS (2)
  1. SEROQUEL [Suspect]
     Route: 048
     Dates: start: 200812, end: 201006
  2. UNSPECIFIED [Suspect]
     Route: 065

REACTIONS (2)
  - Activities of daily living impaired [Unknown]
  - Dystonia [Unknown]
